FAERS Safety Report 7142204-3 (Version None)
Quarter: 2010Q4

REPORT INFORMATION
  Report Type: 
  Country: None (occurrence: None)
  Receive Date: 20101207
  Receipt Date: 20101204
  Transmission Date: 20110411
  Serious: Yes (Other)
  Sender: FDA-Public Use
  Company Number: US-PFIZER INC-2010164144

PATIENT
  Sex: Male
  Weight: 185.94 kg

DRUGS (3)
  1. VIAGRA [Suspect]
     Indication: ERECTILE DYSFUNCTION
     Dosage: 500 MG, 2X/DAY
     Route: 048
     Dates: start: 20101203
  2. MARIJUANA [Concomitant]
     Dosage: UNK
  3. COCAINE [Concomitant]
     Dosage: UNK

REACTIONS (1)
  - ERECTION INCREASED [None]
